FAERS Safety Report 14505647 (Version 1)
Quarter: 2018Q1

REPORT INFORMATION
  Report Type: Spontaneous
  Country: US (occurrence: US)
  Receive Date: 20180208
  Receipt Date: 20180208
  Transmission Date: 20180509
  Serious: No
  Sender: FDA-Public Use
  Company Number: US-009507513-1802USA003874

PATIENT
  Age: 67 Year
  Sex: Male

DRUGS (2)
  1. WARFARIN [Concomitant]
     Active Substance: WARFARIN
     Dosage: 51 MG/WEEK
  2. SIMVASTATIN TABLETS, USP [Suspect]
     Active Substance: SIMVASTATIN

REACTIONS (2)
  - Back pain [Unknown]
  - Pain [Unknown]
